FAERS Safety Report 21908190 (Version 4)
Quarter: 2023Q2

REPORT INFORMATION
  Report Type: Report from Study
  Country: GB (occurrence: GB)
  Receive Date: 20230125
  Receipt Date: 20230405
  Transmission Date: 20230721
  Serious: Yes (Other)
  Sender: FDA-Public Use
  Company Number: GB-002147023-NVSC2023GB012850

PATIENT
  Sex: Male

DRUGS (1)
  1. COSENTYX [Suspect]
     Active Substance: SECUKINUMAB
     Indication: Ankylosing spondylitis
     Dosage: 150 MG, QMO
     Route: 065

REACTIONS (5)
  - Loss of consciousness [Unknown]
  - Accident [Not Recovered/Not Resolved]
  - Fall [Not Recovered/Not Resolved]
  - Tooth infection [Not Recovered/Not Resolved]
  - Liver function test increased [Unknown]
